FAERS Safety Report 24110333 (Version 2)
Quarter: 2024Q4

REPORT INFORMATION
  Report Type: Spontaneous
  Country: IT (occurrence: IT)
  Receive Date: 20240718
  Receipt Date: 20241009
  Transmission Date: 20250115
  Serious: Yes (Hospitalization, Other)
  Sender: UCB
  Company Number: IT-UCBSA-2024036223

PATIENT
  Age: 8 Year
  Sex: Male
  Weight: 15 kg

DRUGS (7)
  1. FENFLURAMINE HYDROCHLORIDE [Suspect]
     Active Substance: FENFLURAMINE HYDROCHLORIDE
     Indication: CDKL5 deficiency disorder
     Dosage: 1.3 MILLILITER, 2X/DAY (BID)
     Dates: start: 20240412, end: 20240519
  2. FENFLURAMINE HYDROCHLORIDE [Suspect]
     Active Substance: FENFLURAMINE HYDROCHLORIDE
     Indication: Off label use
  3. PHENOBARBITAL [Concomitant]
     Active Substance: PHENOBARBITAL
     Indication: Epilepsy
     Dosage: 75 MILLIGRAM, ONCE DAILY (QD)
     Dates: start: 202402, end: 20240504
  4. LAMOTRIGINE [Concomitant]
     Active Substance: LAMOTRIGINE
     Indication: Epilepsy
     Dosage: 87.5 MILLIGRAM, 2X/DAY (BID)
     Dates: start: 202001
  5. CANNABIDIOL [Concomitant]
     Active Substance: CANNABIDIOL
     Indication: Epilepsy
     Dosage: 140 MILLIGRAM, 2X/DAY (BID)
     Dates: start: 202103
  6. AMPICILLIN SODIUM\SULBACTAM SODIUM [Concomitant]
     Active Substance: AMPICILLIN SODIUM\SULBACTAM SODIUM
     Indication: Pneumonia
     Dosage: 1300 MILLIGRAM, 2X/DAY (BID)
     Route: 042
     Dates: start: 20240419, end: 20240425
  7. AMOXICILLIN\CLAVULANIC ACID [Concomitant]
     Active Substance: AMOXICILLIN\CLAVULANIC ACID
     Indication: Pneumonia
     Dosage: 400 MILLIGRAM, 3X/DAY (TID)
     Dates: start: 20240425, end: 20240430

REACTIONS (5)
  - Movement disorder [Recovered/Resolved]
  - Pyrexia [Recovered/Resolved]
  - Weight decreased [Recovered/Resolved]
  - Drug effective for unapproved indication [Unknown]
  - Off label use [Unknown]

NARRATIVE: CASE EVENT DATE: 20240419
